FAERS Safety Report 6561789-9 (Version None)
Quarter: 2010Q1

REPORT INFORMATION
  Report Type: 
  Country: None (occurrence: None)
  Receive Date: 20100130
  Receipt Date: 20091022
  Transmission Date: 20100710
  Serious: No
  Sender: FDA-Public Use
  Company Number: US-ABBOTT-09P-163-0605157-00

PATIENT
  Sex: Female
  Weight: 82.628 kg

DRUGS (3)
  1. HUMIRA [Suspect]
     Indication: CROHN'S DISEASE
     Route: 058
     Dates: start: 20090918, end: 20090918
  2. HUMIRA [Suspect]
     Route: 058
     Dates: start: 20091001, end: 20091001
  3. HUMIRA [Suspect]
     Route: 058
     Dates: start: 20091001

REACTIONS (6)
  - ANAL FISTULA [None]
  - ERYTHEMA [None]
  - LOCALISED INFECTION [None]
  - TINEA PEDIS [None]
  - VAGINAL FISTULA [None]
  - WHITE BLOOD CELL COUNT INCREASED [None]
